FAERS Safety Report 13812594 (Version 1)
Quarter: 2017Q3

REPORT INFORMATION
  Report Type: Spontaneous
  Country: TW (occurrence: TW)
  Receive Date: 20170728
  Receipt Date: 20170728
  Transmission Date: 20171127
  Serious: Yes (Other)
  Sender: FDA-Public Use
  Company Number: TW-AMGEN-TWNSP2017113268

PATIENT
  Age: 32 Year
  Sex: Male

DRUGS (5)
  1. SULFASALAZINE. [Concomitant]
     Active Substance: SULFASALAZINE
     Indication: ANKYLOSING SPONDYLITIS
     Dosage: 1 DF, 1X/DAY(QD)
  2. ANCOGEN [Concomitant]
     Indication: ANKYLOSING SPONDYLITIS
     Dosage: 1 DF, 1X/DAY(QD)
  3. ENBREL [Suspect]
     Active Substance: ETANERCEPT
     Dosage: 25 MG, WEEKLY (QW)
     Route: 058
     Dates: start: 20160425
  4. MELOXICAM. [Concomitant]
     Active Substance: MELOXICAM
     Indication: ANKYLOSING SPONDYLITIS
     Dosage: 1 DF, 1X/DAY(QD)
  5. ENBREL [Suspect]
     Active Substance: ETANERCEPT
     Indication: ANKYLOSING SPONDYLITIS
     Dosage: 25 MG, 2X/WEEK (BIW)
     Route: 058
     Dates: start: 20130605

REACTIONS (2)
  - Product use issue [Unknown]
  - Iritis [Recovering/Resolving]

NARRATIVE: CASE EVENT DATE: 20170716
